FAERS Safety Report 9466128 (Version 1)
Quarter: 2013Q3

REPORT INFORMATION
  Report Type: Report from Study
  Country: US (occurrence: US)
  Receive Date: 20130820
  Receipt Date: 20130820
  Transmission Date: 20140515
  Serious: Yes (Hospitalization, Other)
  Sender: FDA-Public Use
  Company Number: US-JNJFOC-20130806534

PATIENT
  Age: 47 Year
  Sex: Male
  Weight: 77.11 kg

DRUGS (1)
  1. REMICADE [Suspect]
     Indication: COLITIS ULCERATIVE
     Dosage: EVERY 6-7 WEEKS
     Route: 042
     Dates: start: 2012

REACTIONS (4)
  - Volvulus [Unknown]
  - Hiatus hernia [Unknown]
  - Incisional hernia [Not Recovered/Not Resolved]
  - Muscular weakness [Not Recovered/Not Resolved]
